FAERS Safety Report 4597618-2 (Version None)
Quarter: 2005Q1

REPORT INFORMATION
  Report Type: 
  Country: None (occurrence: None)
  Receive Date: 20050228
  Receipt Date: 20050228
  Transmission Date: 20050727
  Serious: Yes (Life-Threatening, Hospitalization, Disabling)
  Sender: FDA-Public Use
  Company Number: None

PATIENT
  Age: 54 Year
  Sex: Male
  Weight: 83.9154 kg

DRUGS (1)
  1. ADDERALL 10 [Suspect]
     Indication: ATTENTION DEFICIT/HYPERACTIVITY DISORDER
     Dosage: 60 MG ONCE DAILY

REACTIONS (4)
  - CARDIOMYOPATHY [None]
  - ENDOCARDIAL FIBROELASTOSIS [None]
  - HYPOKINESIA [None]
  - VENTRICULAR DYSFUNCTION [None]
